FAERS Safety Report 16500318 (Version 1)
Quarter: 2019Q3

REPORT INFORMATION
  Report Type: Spontaneous
  Country: US (occurrence: US)
  Receive Date: 20190628
  Receipt Date: 20190628
  Transmission Date: 20191004
  Serious: Yes (Other)
  Sender: FDA-Public Use
  Company Number: None

PATIENT
  Age: 44 Year
  Sex: Female
  Weight: 57.6 kg

DRUGS (6)
  1. SPRINTER [Concomitant]
  2. FLEXERIL [Concomitant]
     Active Substance: CYCLOBENZAPRINE HYDROCHLORIDE
  3. VITAMIN B12 [Concomitant]
     Active Substance: CYANOCOBALAMIN
  4. XANAX [Concomitant]
     Active Substance: ALPRAZOLAM
  5. MELOXICAM 15MG [Suspect]
     Active Substance: MELOXICAM
     Indication: TENDONITIS
     Dosage: ?          QUANTITY:1 TABLET(S);?
     Route: 048
     Dates: start: 20190611, end: 20190626
  6. FOLIC ACID. [Concomitant]
     Active Substance: FOLIC ACID

REACTIONS (1)
  - Contusion [None]

NARRATIVE: CASE EVENT DATE: 20190620
